FAERS Safety Report 6381233-4 (Version None)
Quarter: 2009Q3

REPORT INFORMATION
  Report Type: 
  Country: None (occurrence: None)
  Receive Date: 20090923
  Receipt Date: 20090908
  Transmission Date: 20100115
  Serious: Yes (Hospitalization)
  Sender: FDA-Public Use
  Company Number: 2009001785

PATIENT
  Age: 72 Year
  Sex: Female
  Weight: 89 kg

DRUGS (21)
  1. ERLOTINIB HYDROCHLORIDE [Suspect]
     Indication: NON-SMALL CELL LUNG CANCER
     Dosage: 150 MG, QD, ORAL
     Route: 048
     Dates: start: 20090512
  2. CP-751,871 [Suspect]
     Indication: NON-SMALL CELL LUNG CANCER
  3. TOPALGIC [Concomitant]
  4. METFORMIN HCL [Concomitant]
  5. NONONORM [Concomitant]
  6. NOVOMIX (INSULIN ASPART) [Concomitant]
  7. SOTALOL HCL [Concomitant]
  8. BUMETANIDE [Concomitant]
  9. RYTHMOL [Concomitant]
  10. LYRICA [Concomitant]
  11. FOSINOPRIL SODIUM [Concomitant]
  12. VASTAREL [Concomitant]
  13. ERYTHROMYCIN [Concomitant]
  14. ELUDRIL (ELUDRIL) [Concomitant]
  15. XALATAN [Concomitant]
  16. DEXERYL ^PASCUAL^ [Concomitant]
  17. INSULATARD NPH HUMAN [Concomitant]
  18. ALLOPURINOL [Concomitant]
  19. PANTOPRAZOLE SODIUM [Concomitant]
  20. FLECAINIDE ACETATE [Concomitant]
  21. IMOVANE (ZOPICLONE) [Concomitant]

REACTIONS (6)
  - CHOLESTASIS [None]
  - DIARRHOEA [None]
  - GLYCOSYLATED HAEMOGLOBIN INCREASED [None]
  - HYPOGLYCAEMIA [None]
  - INSOMNIA [None]
  - NORMOCHROMIC NORMOCYTIC ANAEMIA [None]
